FAERS Safety Report 14410130 (Version 2)
Quarter: 2018Q1

REPORT INFORMATION
  Report Type: Spontaneous
  Country: US (occurrence: US)
  Receive Date: 20180119
  Receipt Date: 20180122
  Transmission Date: 20180509
  Serious: No
  Sender: FDA-Public Use
  Company Number: US-PFIZER INC-2018024180

PATIENT
  Age: 58 Year
  Sex: Female
  Weight: 63.49 kg

DRUGS (2)
  1. XELJANZ XR [Suspect]
     Active Substance: TOFACITINIB CITRATE
     Indication: RHEUMATOID ARTHRITIS
     Dosage: 11 MG, DAILY (ONE EVERY DAY)
     Route: 048
     Dates: start: 201709, end: 20180116
  2. FOLIC ACID. [Concomitant]
     Active Substance: FOLIC ACID
     Dosage: 1 MG, DAILY (EVERY DAY)

REACTIONS (5)
  - Abdominal pain upper [Recovered/Resolved]
  - Sinus disorder [Recovered/Resolved]
  - Chills [Recovered/Resolved]
  - Influenza like illness [Recovering/Resolving]
  - Headache [Recovered/Resolved]

NARRATIVE: CASE EVENT DATE: 20180115
